FAERS Safety Report 4388982-8 (Version None)
Quarter: 2004Q3

REPORT INFORMATION
  Report Type: 
  Country: None (occurrence: None)
  Receive Date: 20040702
  Receipt Date: 20040401
  Transmission Date: 20050211
  Serious: Yes (Hospitalization, Other)
  Sender: FDA-Public Use
  Company Number: PHNU2004DE01428

PATIENT
  Age: 72 Year
  Sex: Male

DRUGS (5)
  1. DIOVAN [Suspect]
     Indication: HYPERTENSION
     Dosage: 160 MG, QD
     Route: 048
     Dates: start: 20030903, end: 20040316
  2. DIOVAN [Suspect]
     Dosage: 80 MG, QD
     Route: 048
     Dates: start: 20020822, end: 20030902
  3. ESIDRIX [Suspect]
     Indication: HYPERTENSION
     Dosage: 25 MG/D
     Route: 048
     Dates: start: 20030926, end: 20040316
  4. ALLOPURINOL ^1A FARMA^ [Concomitant]
     Indication: HYPERURICAEMIA
     Dosage: 300 MG/D
     Route: 048
     Dates: start: 20021205, end: 20040214
  5. AMIODARONE HYDROCHLORIDE [Concomitant]
     Dosage: 200 MG/D
     Route: 048
     Dates: start: 20020402

REACTIONS (3)
  - MYOCARDIAL INFARCTION [None]
  - RENAL CELL CARCINOMA STAGE UNSPECIFIED [None]
  - RENAL TUMOUR EXCISION [None]
